FAERS Safety Report 4953026-3 (Version None)
Quarter: 2006Q1

REPORT INFORMATION
  Report Type: 
  Country: None (occurrence: None)
  Receive Date: 20060324
  Receipt Date: 20060313
  Transmission Date: 20060701
  Serious: Yes (Hospitalization)
  Sender: FDA-Public Use
  Company Number: FR-GLAXOSMITHKLINE-B0416675A

PATIENT
  Age: 82 Year
  Sex: Male

DRUGS (8)
  1. TAGAMET [Suspect]
     Dosage: 200MG PER DAY
     Route: 048
     Dates: start: 20050801
  2. PREVISCAN [Suspect]
     Dosage: 1U PER DAY
     Route: 048
  3. DOLIPRANE [Suspect]
     Dosage: 1MG THREE TIMES PER DAY
     Route: 048
  4. TEMESTA [Suspect]
     Dosage: 1MG PER DAY
     Route: 048
  5. VASTAREL [Suspect]
     Dosage: 35MG TWICE PER DAY
     Route: 048
  6. MONOTILDIEM [Suspect]
     Dosage: 300MG PER DAY
     Route: 048
  7. SERETIDE [Concomitant]
     Route: 065
  8. GINSENG [Concomitant]

REACTIONS (2)
  - INTERNATIONAL NORMALISED RATIO INCREASED [None]
  - THERAPEUTIC RESPONSE INCREASED [None]
